FAERS Safety Report 9013949 (Version 1)
Quarter: 2013Q1

REPORT INFORMATION
  Report Type: Spontaneous
  Country: TR (occurrence: TR)
  Receive Date: 20130115
  Receipt Date: 20130115
  Transmission Date: 20140127
  Serious: Yes (Hospitalization, Other)
  Sender: FDA-Public Use
  Company Number: TR-PFIZER INC-2013014639

PATIENT
  Age: 65 Year
  Sex: Female

DRUGS (4)
  1. LYRICA [Suspect]
     Indication: DIABETIC NEUROPATHY
     Dosage: 150 MG, 2X/DAY
  2. LYRICA [Suspect]
     Indication: BACK PAIN
  3. INSULIN LISPRO [Concomitant]
     Dosage: 50%, UNKNOWN
  4. HUMALOG [Concomitant]
     Dosage: 50/50, UNKNOWN

REACTIONS (4)
  - Overdose [Unknown]
  - Atrioventricular block complete [Recovered/Resolved]
  - Bundle branch block right [Recovered/Resolved]
  - Urinary retention [Unknown]
